FAERS Safety Report 8541665-2 (Version None)
Quarter: 2012Q3

REPORT INFORMATION
  Report Type: 
  Country: None (occurrence: None)
  Receive Date: 20120726
  Receipt Date: 20120717
  Transmission Date: 20120928
  Serious: Yes (Congenital Anomaly)
  Sender: FDA-Public Use
  Company Number: FR-GLAXOSMITHKLINE-B0815072B

PATIENT
  Sex: Female
  Weight: 1.4 kg

DRUGS (5)
  1. AMOXICILLIN TRIHYDRATE [Concomitant]
     Route: 064
     Dates: start: 20110105
  2. LAMICTAL [Suspect]
     Indication: PARTIAL SEIZURES
     Dosage: 50MG PER DAY
     Route: 064
  3. OMEPRAZOLE [Concomitant]
     Dosage: 20MG PER DAY
     Route: 064
  4. AMITRIPTYLINE HYDROCHLORIDE [Suspect]
     Indication: DEPRESSION
     Dosage: 50MG THREE TIMES PER DAY
     Route: 064
  5. NOCTRAN [Suspect]
     Indication: PRODUCT USED FOR UNKNOWN INDICATION
     Dosage: 1UNIT PER DAY
     Route: 064

REACTIONS (9)
  - APNOEA [None]
  - ANAEMIA [None]
  - CARDIAC MURMUR [None]
  - PREMATURE BABY [None]
  - VENTRICULAR SEPTAL DEFECT [None]
  - FOETAL MALNUTRITION [None]
  - JAUNDICE [None]
  - NEONATAL RESPIRATORY DISTRESS SYNDROME [None]
  - FOETAL EXPOSURE DURING PREGNANCY [None]
